FAERS Safety Report 12384145 (Version 1)
Quarter: 2016Q2

REPORT INFORMATION
  Report Type: Spontaneous
  Country: US (occurrence: None)
  Receive Date: 20160518
  Receipt Date: 20160518
  Transmission Date: 20160815
  Serious: Yes (Disabling)
  Sender: FDA-Public Use
  Company Number: None

PATIENT
  Age: 54 Year
  Sex: Female
  Weight: 60.78 kg

DRUGS (2)
  1. LEVOFLOXACIN, 500 MG [Suspect]
     Active Substance: LEVOFLOXACIN
     Indication: SINUSITIS
     Route: 048
     Dates: start: 20160422, end: 20160429
  2. HYDROXYCHLOROQUINE [Concomitant]
     Active Substance: HYDROXYCHLOROQUINE

REACTIONS (11)
  - Back pain [None]
  - Influenza [None]
  - Paraesthesia [None]
  - Drug ineffective [None]
  - Muscle swelling [None]
  - Hypoaesthesia [None]
  - Joint swelling [None]
  - Tendonitis [None]
  - Skin burning sensation [None]
  - Muscle spasms [None]
  - Gait disturbance [None]

NARRATIVE: CASE EVENT DATE: 20160428
